FAERS Safety Report 9448169 (Version 1)
Quarter: 2013Q3

REPORT INFORMATION
  Report Type: Spontaneous
  Country: CA (occurrence: CA)
  Receive Date: 20130808
  Receipt Date: 20130808
  Transmission Date: 20140515
  Serious: Yes (Other)
  Sender: FDA-Public Use
  Company Number: CA-JNJFOC-20130716477

PATIENT
  Age: 12 Year
  Sex: Male
  Weight: 44 kg

DRUGS (8)
  1. TYLENOL [Suspect]
     Route: 048
  2. TYLENOL EXTRA STRENGTH EZTAB [Suspect]
     Indication: HEADACHE
     Route: 048
  3. FLOVENT [Concomitant]
     Indication: ASTHMA
     Route: 065
  4. VENTOLIN [Concomitant]
     Indication: ASTHMA
     Route: 065
  5. EPIPEN [Concomitant]
     Indication: HYPERSENSITIVITY
     Route: 065
  6. NASONEX [Concomitant]
     Indication: HYPERSENSITIVITY
     Route: 065
  7. ZADITOR NOS [Concomitant]
     Indication: HYPERSENSITIVITY
     Route: 065
  8. REACTINE [Concomitant]
     Indication: PRODUCT USED FOR UNKNOWN INDICATION
     Dosage: 1 PILL
     Route: 065

REACTIONS (3)
  - Dyspnoea [Recovered/Resolved]
  - Hypersensitivity [Recovered/Resolved]
  - Acne [Recovered/Resolved]
